FAERS Safety Report 7256257-5 (Version None)
Quarter: 2011Q1

REPORT INFORMATION
  Report Type: 
  Country: None (occurrence: None)
  Receive Date: 20110129
  Receipt Date: 20100519
  Transmission Date: 20110831
  Serious: No
  Sender: FDA-Public Use
  Company Number: US-ABBOTT-10P-163-0633280-00

PATIENT
  Sex: Male
  Weight: 62.198 kg

DRUGS (6)
  1. CIPRO [Concomitant]
     Indication: CROHN'S DISEASE
  2. LOMOTIL [Concomitant]
     Indication: DIARRHOEA
  3. EXCEDRIN (MIGRAINE) [Suspect]
     Indication: GASTROENTERITIS VIRAL
     Dates: start: 20100101, end: 20100101
  4. HUMIRA [Suspect]
     Indication: CROHN'S DISEASE
     Dates: start: 20080822
  5. HUMIRA [Suspect]
     Route: 058
     Dates: start: 20100519
  6. NEXIUM [Concomitant]
     Indication: GASTROOESOPHAGEAL REFLUX DISEASE

REACTIONS (8)
  - ABDOMINAL PAIN UPPER [None]
  - NAUSEA [None]
  - ABDOMINAL DISCOMFORT [None]
  - DEHYDRATION [None]
  - MALAISE [None]
  - POUCHITIS [None]
  - INCORRECT DRUG ADMINISTRATION DURATION [None]
  - GASTROENTERITIS VIRAL [None]
